FAERS Safety Report 9324628 (Version 1)
Quarter: 2013Q2

REPORT INFORMATION
  Report Type: Spontaneous
  Country: CA (occurrence: CA)
  Receive Date: 20130603
  Receipt Date: 20130603
  Transmission Date: 20140414
  Serious: Yes (Hospitalization)
  Sender: FDA-Public Use
  Company Number: CA-B.I. PHARMACEUTICALS,INC./RIDGEFIELD-2013-CN-01011CN

PATIENT
  Sex: Male

DRUGS (4)
  1. PRADAXA [Suspect]
     Dosage: 150 MG
  2. JANUVIA [Concomitant]
  3. METFORMIN [Concomitant]
  4. INSULIN [Concomitant]
     Dates: end: 2013

REACTIONS (4)
  - Haemorrhage intracranial [Recovered/Resolved]
  - Cervical vertebral fracture [Recovered/Resolved]
  - Fall [Recovered/Resolved]
  - Hypoglycaemia [Recovered/Resolved]
